FAERS Safety Report 8565269-0 (Version None)
Quarter: 2012Q3

REPORT INFORMATION
  Report Type: 
  Country: None (occurrence: None)
  Receive Date: 20120803
  Receipt Date: 20120723
  Transmission Date: 20120928
  Serious: Yes (Death)
  Sender: FDA-Public Use
  Company Number: LT-ALEXION PHARMACEUTICALS INC.-A201201413

PATIENT
  Sex: Male

DRUGS (8)
  1. ALPHACALCIDOL [Concomitant]
  2. ERYTHROPOETIN [Concomitant]
     Indication: ANAEMIA
  3. BETA BLOCKERS [Concomitant]
     Indication: HYPERTENSION
  4. HUMAN GROWTH HORMONE, RECOMBINANT [Concomitant]
     Indication: GROWTH HORMONE DEFICIENCY
  5. ACFI [Concomitant]
     Indication: HYPERTENSION
  6. IMIDASOLINE RECEPTOR AGONISTS [Concomitant]
     Indication: HYPERTENSION
  7. SOLIRIS [Suspect]
     Indication: HAEMOLYTIC URAEMIC SYNDROME
     Dosage: 600 MG, 2 DAYS
     Route: 042
     Dates: start: 20120715, end: 20120716
  8. ASPIRIN [Concomitant]

REACTIONS (1)
  - CEREBROVASCULAR ACCIDENT [None]
